FAERS Safety Report 12375308 (Version 1)
Quarter: 2016Q2

REPORT INFORMATION
  Report Type: Spontaneous
  Country: US (occurrence: None)
  Receive Date: 20160516
  Receipt Date: 20160516
  Transmission Date: 20160815
  Serious: Yes (Hospitalization)
  Sender: FDA-Public Use
  Company Number: None

PATIENT
  Age: 60 Year
  Sex: Male
  Weight: 88.45 kg

DRUGS (3)
  1. IBUPROFEN. [Concomitant]
     Active Substance: IBUPROFEN
  2. PRIMIDONE. [Concomitant]
     Active Substance: PRIMIDONE
  3. EQUATE REVIVE PLUS LUBRICANT EYE [Suspect]
     Active Substance: CARBOXYMETHYLCELLULOSE SODIUM
     Indication: DRY EYE
     Dosage: 70 SINGLE USE, 0.01OZ  AS NEEDED  INTO THE EYE
     Route: 047
     Dates: start: 20160201, end: 20160514

REACTIONS (3)
  - Chemical burns of eye [None]
  - Eyelid pain [None]
  - Eye pain [None]

NARRATIVE: CASE EVENT DATE: 20160514
